FAERS Safety Report 9411567 (Version 1)
Quarter: 2013Q3

REPORT INFORMATION
  Report Type: Spontaneous
  Country: AU (occurrence: AU)
  Receive Date: 20130722
  Receipt Date: 20130722
  Transmission Date: 20140515
  Serious: Yes (Hospitalization)
  Sender: FDA-Public Use
  Company Number: AU-BAYER-2013-084871

PATIENT
  Age: 41 Year
  Sex: Female

DRUGS (2)
  1. MIRENA [Suspect]
     Indication: CONTRACEPTION
     Dosage: UNK
     Dates: start: 201012, end: 20130617
  2. MIRENA [Suspect]
     Indication: CONTRACEPTION
     Dosage: UNK
     Dates: start: 2005, end: 2010

REACTIONS (9)
  - Pelvic inflammatory disease [Recovering/Resolving]
  - Abdominal pain [Recovering/Resolving]
  - Pelvic pain [Recovering/Resolving]
  - Feeling cold [Recovering/Resolving]
  - Mental disorder [None]
  - Sexual dysfunction [None]
  - Borderline personality disorder [None]
  - Gastric disorder [None]
  - Device difficult to use [None]
